FAERS Safety Report 6486659-6 (Version None)
Quarter: 2009Q4

REPORT INFORMATION
  Report Type: 
  Country: None (occurrence: None)
  Receive Date: 20091210
  Receipt Date: 20091202
  Transmission Date: 20100525
  Serious: Yes (Hospitalization)
  Sender: FDA-Public Use
  Company Number: JP-ROCHE-668129

PATIENT
  Sex: Male
  Weight: 53 kg

DRUGS (3)
  1. PEGASYS [Suspect]
     Indication: HEPATITIS C
     Route: 058
     Dates: start: 20090901, end: 20091001
  2. HERBAL EXTRACTS NOS [Suspect]
     Indication: DRUG USE FOR UNKNOWN INDICATION
     Dosage: DRUG REPORTED AS: SAIBOKU-TO
     Route: 048
  3. HANGE-SHASHIN-TO [Suspect]
     Indication: DRUG USE FOR UNKNOWN INDICATION
     Dosage: DOSE FORM: ORAL FORMULATION
     Route: 048

REACTIONS (1)
  - INTERSTITIAL LUNG DISEASE [None]
